FAERS Safety Report 12602086 (Version 5)
Quarter: 2016Q4

REPORT INFORMATION
  Report Type: Spontaneous
  Country: US (occurrence: US)
  Receive Date: 20160728
  Receipt Date: 20161019
  Transmission Date: 20170207
  Serious: No
  Sender: FDA-Public Use
  Company Number: US-PFIZER INC-2016338518

PATIENT
  Age: 49 Year
  Sex: Male
  Weight: 77 kg

DRUGS (6)
  1. HYDROCHLOROTHIAZIDE. [Concomitant]
     Active Substance: HYDROCHLOROTHIAZIDE
     Dosage: 1/2 TAB, DAILY
  2. SUTENT [Suspect]
     Active Substance: SUNITINIB MALATE
     Indication: RENAL CANCER METASTATIC
     Dosage: 50 MG, 28 DAYS ON/14 DAYS OFF
     Dates: start: 20160617
  3. LISINOPRIL. [Concomitant]
     Active Substance: LISINOPRIL
     Dosage: UNK
  4. DICLOFENAC [Concomitant]
     Active Substance: DICLOFENAC
     Dosage: UNK
  5. LEVOTHYROXINE. [Concomitant]
     Active Substance: LEVOTHYROXINE
     Dosage: UNK
  6. DEXAMETHASONE. [Concomitant]
     Active Substance: DEXAMETHASONE
     Dosage: UNK

REACTIONS (18)
  - Disease progression [Unknown]
  - Renal cancer metastatic [Unknown]
  - Hypotension [Unknown]
  - Vomiting [Unknown]
  - Nausea [Unknown]
  - Asthenia [Unknown]
  - Alopecia [Unknown]
  - Diarrhoea [Unknown]
  - Pruritus [Unknown]
  - Gastroenteritis viral [Unknown]
  - Dizziness [Unknown]
  - Abdominal discomfort [Unknown]
  - Hair colour changes [Unknown]
  - Malaise [Unknown]
  - Feeling jittery [Unknown]
  - Dry skin [Unknown]
  - Temperature intolerance [Unknown]
  - Impaired healing [Not Recovered/Not Resolved]
